FAERS Safety Report 4819584-4 (Version None)
Quarter: 2005Q4

REPORT INFORMATION
  Report Type: 
  Country: None (occurrence: None)
  Receive Date: 20051102
  Receipt Date: 20051102
  Transmission Date: 20060501
  Serious: Yes (Hospitalization)
  Sender: FDA-Public Use
  Company Number: None

PATIENT
  Age: 55 Year
  Sex: Female
  Weight: 199.5 kg

DRUGS (15)
  1. INTEGRILIN [Suspect]
     Indication: ACUTE CORONARY SYNDROME
     Dosage: 2 MCG KG/MIN ONCE 180 MCG/KG 040 +041
     Dates: start: 20051014
  2. ASPIRIN [Concomitant]
  3. LOVENOX [Concomitant]
  4. LOPRESSOR [Concomitant]
  5. ZOCOR [Concomitant]
  6. GLIPIZIDE [Concomitant]
  7. REOTORIL [Concomitant]
  8. MORPHINE [Concomitant]
  9. REGULAR INSULIN [Concomitant]
  10. TYLENOL (CAPLET) [Concomitant]
  11. NITROPASTE [Concomitant]
  12. NITROGLYCERIN [Concomitant]
  13. CARDIZEM CD [Concomitant]
  14. .. [Concomitant]
  15. DICLOFENAC [Concomitant]

REACTIONS (2)
  - CONTUSION [None]
  - PLATELET COUNT DECREASED [None]
